FAERS Safety Report 17727153 (Version 8)
Quarter: 2024Q4

REPORT INFORMATION
  Report Type: Spontaneous
  Country: CA (occurrence: CA)
  Receive Date: 20200430
  Receipt Date: 20241108
  Transmission Date: 20250115
  Serious: Yes (Other)
  Sender: GLAXOSMITHKLINE
  Company Number: CA-GLAXOSMITHKLINE-CA2020GSK073370

PATIENT

DRUGS (48)
  1. BUPROPION [Suspect]
     Active Substance: BUPROPION
     Indication: Anxiety
     Dosage: 1 DF, BID
     Route: 048
  2. BUPROPION [Suspect]
     Active Substance: BUPROPION
     Dosage: 2 DF, BID
     Route: 048
  3. BUPROPION [Suspect]
     Active Substance: BUPROPION
     Dosage: 1 DF, 1D
     Route: 048
  4. BUPROPION [Suspect]
     Active Substance: BUPROPION
     Dosage: 0.5 DF, QD
     Route: 048
  5. BUPROPION [Suspect]
     Active Substance: BUPROPION
     Dosage: 2 DF, BID
     Route: 048
  6. BUPROPION [Suspect]
     Active Substance: BUPROPION
     Dosage: 2 DF, QD
     Route: 048
  7. CANDESARTAN CILEXETIL [Suspect]
     Active Substance: CANDESARTAN CILEXETIL
     Indication: Hypertension
     Dosage: 24 MG, 1D
     Route: 065
  8. CANDESARTAN CILEXETIL [Suspect]
     Active Substance: CANDESARTAN CILEXETIL
     Dosage: 16 MG, 1D
     Route: 048
  9. CANDESARTAN CILEXETIL [Suspect]
     Active Substance: CANDESARTAN CILEXETIL
     Dosage: 1 DF, QD
     Route: 048
  10. CANDESARTAN CILEXETIL [Suspect]
     Active Substance: CANDESARTAN CILEXETIL
     Dosage: 1 DF, QD
     Route: 048
  11. CANDESARTAN CILEXETIL [Suspect]
     Active Substance: CANDESARTAN CILEXETIL
     Dosage: 1 DF
     Route: 048
  12. CLONAZEPAM [Suspect]
     Active Substance: CLONAZEPAM
     Indication: Sleep disorder
     Dosage: 1 DF, 1D
     Route: 048
  13. CLONAZEPAM [Suspect]
     Active Substance: CLONAZEPAM
     Dosage: UNK
     Route: 048
  14. OMALIZUMAB [Suspect]
     Active Substance: OMALIZUMAB
     Indication: Asthma
     Dosage: 1 DF, BID
     Route: 058
  15. OMALIZUMAB [Suspect]
     Active Substance: OMALIZUMAB
     Dosage: 2 DF, QD ( 1 IN 1 D)
     Route: 058
  16. OMALIZUMAB [Suspect]
     Active Substance: OMALIZUMAB
     Dosage: 1 DF
     Route: 058
  17. OMALIZUMAB [Suspect]
     Active Substance: OMALIZUMAB
     Dosage: 1 DF, 1 IN 1D
     Route: 057
  18. OMALIZUMAB [Suspect]
     Active Substance: OMALIZUMAB
     Dosage: 2 DF, 1 IN 1D
     Route: 057
  19. OMALIZUMAB [Suspect]
     Active Substance: OMALIZUMAB
     Dosage: 2 DF, 1 IN 1D
     Route: 057
  20. OMALIZUMAB [Suspect]
     Active Substance: OMALIZUMAB
     Dosage: 4 DF, 1 IN 1D
     Route: 058
  21. OMALIZUMAB [Suspect]
     Active Substance: OMALIZUMAB
     Dosage: 2 DOSAGE FORMS,1 IN 12 HR
     Route: 058
  22. NAPROXEN [Concomitant]
     Active Substance: NAPROXEN
     Indication: Product used for unknown indication
     Dosage: UNK
     Route: 065
  23. NASONEX [Concomitant]
     Active Substance: MOMETASONE FUROATE
     Indication: Hypersensitivity
     Dosage: 4 DF, 1D (SPRAY, METERED DOSE)
     Route: 006
  24. PREDNISONE [Concomitant]
     Active Substance: PREDNISONE
     Indication: Asthma
     Dosage: 25 MG, 1D
     Route: 065
  25. PREDNISONE [Concomitant]
     Active Substance: PREDNISONE
     Dosage: 30 MG, 1D
     Route: 048
  26. PREDNISONE [Concomitant]
     Active Substance: PREDNISONE
     Dosage: 5 MG, 1D
     Route: 065
  27. PREDNISONE [Concomitant]
     Active Substance: PREDNISONE
     Dosage: 30 MG, 1D
     Route: 065
  28. PREDNISONE [Concomitant]
     Active Substance: PREDNISONE
     Dosage: 50 MG, 1D
     Route: 048
  29. PREDNISONE [Concomitant]
     Active Substance: PREDNISONE
     Dosage: 50 MG, 1D
     Route: 048
  30. PREDNISONE [Concomitant]
     Active Substance: PREDNISONE
     Dosage: 1 DF
     Route: 048
  31. PREDNISONE [Concomitant]
     Active Substance: PREDNISONE
     Dosage: UNK
     Route: 065
  32. SINGULAIR [Concomitant]
     Active Substance: MONTELUKAST SODIUM
     Indication: Asthma
     Dosage: 1 DF, 1D
     Route: 048
  33. SINGULAIR [Concomitant]
     Active Substance: MONTELUKAST SODIUM
     Dosage: UNK
     Route: 065
  34. SPIRIVA [Concomitant]
     Active Substance: TIOTROPIUM BROMIDE MONOHYDRATE
     Indication: Asthma
     Dosage: 2 DF, 1D
     Route: 065
  35. SPIRIVA [Concomitant]
     Active Substance: TIOTROPIUM BROMIDE MONOHYDRATE
     Dosage: 1 DF, 1D
     Route: 048
  36. SPIRIVA [Concomitant]
     Active Substance: TIOTROPIUM BROMIDE MONOHYDRATE
     Dosage: 2 DF, 1D
     Route: 048
  37. TRAZODONE [Concomitant]
     Active Substance: TRAZODONE HYDROCHLORIDE
     Indication: Asthma
     Dosage: 1 DF, 1D
     Route: 048
  38. TRAZODONE [Concomitant]
     Active Substance: TRAZODONE HYDROCHLORIDE
     Indication: Product used for unknown indication
     Dosage: UNK
     Route: 065
  39. TRAZODONE [Concomitant]
     Active Substance: TRAZODONE HYDROCHLORIDE
     Dosage: UNK
     Route: 048
  40. TYLENOL [Concomitant]
     Active Substance: ACETAMINOPHEN
     Indication: Product used for unknown indication
     Dosage: UNK
     Route: 065
  41. VENTOLIN [Concomitant]
     Active Substance: ALBUTEROL SULFATE
     Indication: Asthma
     Dosage: 2 DF
     Route: 065
  42. ALBUTEROL [Concomitant]
     Active Substance: ALBUTEROL
     Indication: Asthma
     Dosage: 2 DF
  43. TIOTROPIUM BROMIDE [Concomitant]
     Active Substance: TIOTROPIUM BROMIDE
     Indication: Asthma
     Dosage: 2 DF, 1D
  44. TIOTROPIUM BROMIDE [Concomitant]
     Active Substance: TIOTROPIUM BROMIDE
     Dosage: 1 DF, 1D
     Route: 048
  45. ADVAIR HFA [Concomitant]
     Active Substance: FLUTICASONE PROPIONATE\SALMETEROL XINAFOATE
     Indication: Asthma
     Dosage: 1 DF, 1D
  46. SALMETEROL XINAFOATE [Concomitant]
     Active Substance: SALMETEROL XINAFOATE
     Indication: Asthma
     Dosage: 2 DF
     Route: 065
  47. SALMETEROL XINAFOATE [Concomitant]
     Active Substance: SALMETEROL XINAFOATE
     Indication: Product used for unknown indication
     Dosage: UNK
     Route: 065
  48. ACETAMINOPHEN [Concomitant]
     Active Substance: ACETAMINOPHEN
     Indication: Product used for unknown indication
     Dosage: UNK

REACTIONS (7)
  - Productive cough [Not Recovered/Not Resolved]
  - Sputum discoloured [Not Recovered/Not Resolved]
  - Pneumonia [Not Recovered/Not Resolved]
  - Breast cancer [Not Recovered/Not Resolved]
  - Dyspnoea [Not Recovered/Not Resolved]
  - Headache [Not Recovered/Not Resolved]
  - Drug ineffective [Not Recovered/Not Resolved]
